FAERS Safety Report 7755220-5 (Version None)
Quarter: 2011Q3

REPORT INFORMATION
  Report Type: 
  Country: None (occurrence: None)
  Receive Date: 20110914
  Receipt Date: 20110831
  Transmission Date: 20111222
  Serious: Yes (Life-Threatening, Hospitalization)
  Sender: FDA-Public Use
  Company Number: TUK2011A00126

PATIENT
  Age: 67 Year
  Sex: Male

DRUGS (5)
  1. ASPIRIN [Concomitant]
  2. GLICLAZIDE (GLICLAZIDE) [Concomitant]
  3. SIMVASTATIN [Concomitant]
  4. ACTOS [Suspect]
     Indication: DIABETES MELLITUS
     Dosage: 15 MG (15 MG) ORAL
     Route: 048
     Dates: start: 20080812
  5. METFORMIN HCL [Concomitant]

REACTIONS (1)
  - RENAL CELL CARCINOMA [None]
